FAERS Safety Report 12001415 (Version 2)
Quarter: 2016Q1

REPORT INFORMATION
  Report Type: Spontaneous
  Country: GB (occurrence: GB)
  Receive Date: 20160204
  Receipt Date: 20160322
  Transmission Date: 20160526
  Serious: Yes (Death)
  Sender: FDA-Public Use
  Company Number: GB-PFIZER INC-2016051637

PATIENT
  Age: 56 Year
  Sex: Male
  Weight: 72 kg

DRUGS (5)
  1. CRIZOTINIB [Suspect]
     Active Substance: CRIZOTINIB
     Indication: LUNG NEOPLASM MALIGNANT
     Dosage: 250 MG, (ORAL TUBE FEEDING)
     Route: 048
     Dates: start: 20150318, end: 20150330
  2. METRONIDAZOLE. [Concomitant]
     Active Substance: METRONIDAZOLE
     Indication: C-REACTIVE PROTEIN INCREASED
  3. TAZOCIN [Concomitant]
     Active Substance: PIPERACILLIN SODIUM\TAZOBACTAM SODIUM
     Indication: LOWER RESPIRATORY TRACT INFECTION
     Dosage: 4.5 G, UNK
     Route: 042
     Dates: start: 20150315, end: 20150330
  4. TAZOCIN [Concomitant]
     Active Substance: PIPERACILLIN SODIUM\TAZOBACTAM SODIUM
     Indication: C-REACTIVE PROTEIN
  5. METRONIDAZOLE. [Concomitant]
     Active Substance: METRONIDAZOLE
     Indication: LOWER RESPIRATORY TRACT INFECTION
     Dosage: 500 MG, UNK
     Route: 042
     Dates: start: 20150315, end: 20150330

REACTIONS (3)
  - Fungal infection [Fatal]
  - Encephalitis [Fatal]
  - Product use issue [Unknown]

NARRATIVE: CASE EVENT DATE: 20150318
